FAERS Safety Report 22249002 (Version 1)
Quarter: 2023Q2

REPORT INFORMATION
  Report Type: Spontaneous
  Country: US (occurrence: US)
  Receive Date: 20230425
  Receipt Date: 20230425
  Transmission Date: 20230721
  Serious: No
  Sender: FDA-Public Use
  Company Number: US-drreddys-LIT/USA/23/0163457

PATIENT
  Age: 54 Year
  Sex: Female

DRUGS (38)
  1. FEXOFENADINE [Suspect]
     Active Substance: FEXOFENADINE HYDROCHLORIDE
     Indication: Product used for unknown indication
  2. HYDROXYZINE HYDROCHLORIDE [Suspect]
     Active Substance: HYDROXYZINE HYDROCHLORIDE
     Indication: Product used for unknown indication
  3. HYDROXYZINE HYDROCHLORIDE [Suspect]
     Active Substance: HYDROXYZINE HYDROCHLORIDE
     Dosage: 25-50 MG; DAILY, AS NEEDED
     Dates: start: 20180518, end: 20180822
  4. HYDROXYZINE HYDROCHLORIDE [Suspect]
     Active Substance: HYDROXYZINE HYDROCHLORIDE
     Dosage: DAILY, AS NEEDED
     Dates: start: 20200612, end: 20200929
  5. HYDROXYZINE HYDROCHLORIDE [Suspect]
     Active Substance: HYDROXYZINE HYDROCHLORIDE
     Dosage: 1-2 PILLS DAILY AS NEEDED
  6. MINOCYCLINE HYDROCHLORIDE [Suspect]
     Active Substance: MINOCYCLINE HYDROCHLORIDE
     Indication: Granuloma skin
  7. MINOCYCLINE HYDROCHLORIDE [Suspect]
     Active Substance: MINOCYCLINE HYDROCHLORIDE
     Dates: start: 20180905, end: 20181017
  8. TACROLIMUS [Suspect]
     Active Substance: TACROLIMUS
     Indication: Granuloma skin
  9. TACROLIMUS [Suspect]
     Active Substance: TACROLIMUS
     Dates: start: 20210108, end: 20210820
  10. TACROLIMUS [Suspect]
     Active Substance: TACROLIMUS
     Dates: start: 20220321, end: 20220504
  11. LORATADINE [Suspect]
     Active Substance: LORATADINE
     Indication: Product used for unknown indication
  12. LORATADINE [Suspect]
     Active Substance: LORATADINE
     Dosage: CURRENT
     Dates: start: 20180518
  13. CLOBETASOL [Suspect]
     Active Substance: CLOBETASOL
     Indication: Product used for unknown indication
  14. CLOBETASOL [Suspect]
     Active Substance: CLOBETASOL
     Dosage: FOAM 0.05 PERCENT, 2-3 TIMES WEEKLY; CURRENTLY
     Dates: start: 20181205
  15. CLOBETASOL [Suspect]
     Active Substance: CLOBETASOL
     Dates: start: 20180518, end: 20181205
  16. METHOTREXATE [Suspect]
     Active Substance: METHOTREXATE
     Indication: Product used for unknown indication
     Route: 026
  17. METHOTREXATE [Suspect]
     Active Substance: METHOTREXATE
     Dosage: WEEKLY
     Route: 048
     Dates: start: 20171213, end: 20180426
  18. METHOTREXATE [Suspect]
     Active Substance: METHOTREXATE
     Dosage: WEEKLY
     Route: 048
     Dates: start: 20180518, end: 20190415
  19. METHOTREXATE [Suspect]
     Active Substance: METHOTREXATE
     Dosage: WEEKLY
     Route: 048
     Dates: start: 20190415, end: 20190523
  20. METHOTREXATE [Suspect]
     Active Substance: METHOTREXATE
     Dosage: WEEKLY; CURRENT
     Route: 048
     Dates: start: 20190523
  21. FLUOROURACIL [Suspect]
     Active Substance: FLUOROURACIL
     Indication: Product used for unknown indication
     Route: 026
  22. CYCLOSPORINE [Suspect]
     Active Substance: CYCLOSPORINE
     Indication: Product used for unknown indication
  23. DAPSONE [Suspect]
     Active Substance: DAPSONE
     Indication: Granuloma skin
     Route: 048
     Dates: start: 20181010, end: 20181205
  24. DAPSONE [Suspect]
     Active Substance: DAPSONE
     Route: 048
     Dates: start: 20181205, end: 20191122
  25. DAPSONE [Suspect]
     Active Substance: DAPSONE
     Route: 048
     Dates: start: 20191122, end: 20200918
  26. DAPSONE [Suspect]
     Active Substance: DAPSONE
     Route: 048
     Dates: start: 20200918, end: 20201120
  27. DAPSONE [Suspect]
     Active Substance: DAPSONE
     Route: 048
     Dates: start: 20201120, end: 20210716
  28. DAPSONE [Suspect]
     Active Substance: DAPSONE
     Route: 048
     Dates: start: 20210716, end: 20220331
  29. DAPSONE [Suspect]
     Active Substance: DAPSONE
     Route: 048
     Dates: start: 20220331, end: 20220602
  30. GABAPENTIN [Suspect]
     Active Substance: GABAPENTIN
     Indication: Granuloma skin
  31. GABAPENTIN [Suspect]
     Active Substance: GABAPENTIN
     Dates: start: 20220331, end: 20221021
  32. MUPIROCIN [Suspect]
     Active Substance: MUPIROCIN
     Indication: Granuloma skin
  33. MUPIROCIN [Suspect]
     Active Substance: MUPIROCIN
     Dates: start: 20191122, end: 20200217
  34. MUPIROCIN [Suspect]
     Active Substance: MUPIROCIN
     Dates: start: 20200612, end: 20210121
  35. DOXEPIN [Suspect]
     Active Substance: DOXEPIN
     Indication: Granuloma skin
  36. DOXEPIN [Suspect]
     Active Substance: DOXEPIN
     Dates: start: 20210414, end: 20210813
  37. HYDROXYCHLOROQUINE SULFATE [Suspect]
     Active Substance: HYDROXYCHLOROQUINE SULFATE
     Indication: Granuloma skin
  38. HYDROXYCHLOROQUINE SULFATE [Suspect]
     Active Substance: HYDROXYCHLOROQUINE SULFATE
     Dates: start: 20210414, end: 20210813

REACTIONS (6)
  - Gastrointestinal disorder [Unknown]
  - Dermatitis allergic [Unknown]
  - Pruritus [Unknown]
  - Methaemoglobinaemia [Unknown]
  - Therapeutic response decreased [Unknown]
  - Product use in unapproved indication [Unknown]
